FAERS Safety Report 21830503 (Version 2)
Quarter: 2023Q1

REPORT INFORMATION
  Report Type: Spontaneous
  Country: US (occurrence: US)
  Receive Date: 20230106
  Receipt Date: 20230209
  Transmission Date: 20230418
  Serious: No
  Sender: FDA-Public Use
  Company Number: US-PHARMING-PHAUS2023000020

PATIENT

DRUGS (2)
  1. RUCONEST [Suspect]
     Active Substance: HUMAN C1-ESTERASE INHIBITOR
     Indication: Hereditary angioedema
     Dosage: 3600 IU, AS NEEDED
     Route: 042
     Dates: start: 202212
  2. RUCONEST [Suspect]
     Active Substance: HUMAN C1-ESTERASE INHIBITOR
     Dosage: 3600 IU, AS NEEDED
     Route: 042
     Dates: start: 202207

REACTIONS (3)
  - Maternal exposure during pregnancy [Unknown]
  - Weight increased [Unknown]
  - Underdose [Unknown]
